FAERS Safety Report 8471598-1 (Version None)
Quarter: 2012Q2

REPORT INFORMATION
  Report Type: 
  Country: None (occurrence: None)
  Receive Date: 20120627
  Receipt Date: 20120614
  Transmission Date: 20120825
  Serious: No
  Sender: FDA-Public Use
  Company Number: US-ASTRAZENECA-2012SE40108

PATIENT
  Age: 831 Month
  Sex: Male
  Weight: 86.2 kg

DRUGS (4)
  1. CHOLESTEROL MEDICATIONS [Concomitant]
  2. PROAIR HFA [Concomitant]
  3. SYMBICORT [Suspect]
     Indication: CHRONIC OBSTRUCTIVE PULMONARY DISEASE
     Dosage: 160/4.5 MCG TWO PUFFS TWICE DAILY
     Route: 055
     Dates: start: 20080101
  4. SPIRIVA [Concomitant]

REACTIONS (1)
  - DYSPNOEA [None]
